FAERS Safety Report 8294166-3 (Version None)
Quarter: 2012Q2

REPORT INFORMATION
  Report Type: 
  Country: None (occurrence: None)
  Receive Date: 20120418
  Receipt Date: 20120413
  Transmission Date: 20120825
  Serious: Yes (Hospitalization, Other)
  Sender: FDA-Public Use
  Company Number: PHEH2005US10700

PATIENT
  Sex: Male
  Weight: 103.85 kg

DRUGS (16)
  1. DEXAMETHASONE [Concomitant]
     Dosage: 4MG 4 DAYS EACH MONTH
  2. NEURONTIN [Concomitant]
     Dosage: 1800 MG, UNK
  3. ALPRAZOLAM [Concomitant]
     Indication: DEPRESSION
     Dosage: 25MCG
  4. CALCIUM CARBONATE [Concomitant]
  5. VINCRISTINE [Concomitant]
     Dosage: 2MG
  6. VANCOMYCIN [Concomitant]
  7. AREDIA [Suspect]
     Dosage: 90 MG, UNK
     Dates: start: 19971204
  8. ZOMETA [Suspect]
     Dosage: UNK UKN, UNK
     Route: 042
  9. ASPIRIN [Concomitant]
  10. LODINE [Concomitant]
  11. DOXORUBICIN HCL [Concomitant]
  12. THALIDOMIDE [Concomitant]
     Dosage: 200 MG, UNK
  13. TAGAMET [Concomitant]
  14. PAROXETINE [Concomitant]
     Dosage: 20 MG, UNK
  15. ALLOPURINOL [Concomitant]
     Indication: RENAL FAILURE
     Dosage: 300MG UNK
  16. ADRIAMYCIN PFS [Concomitant]
     Dosage: 80MG

REACTIONS (32)
  - VENOUS THROMBOSIS [None]
  - PLEURAL EFFUSION [None]
  - HYPONATRAEMIA [None]
  - HYPOACUSIS [None]
  - BONE DISORDER [None]
  - CORONARY ARTERY DISEASE [None]
  - HYPERPARATHYROIDISM SECONDARY [None]
  - CARDIAC FAILURE CONGESTIVE [None]
  - NEPHROSCLEROSIS [None]
  - OSTEOMYELITIS [None]
  - ALPHA HAEMOLYTIC STREPTOCOCCAL INFECTION [None]
  - NEUROPATHY PERIPHERAL [None]
  - DIABETES MELLITUS [None]
  - MASTICATION DISORDER [None]
  - CARDIOMEGALY [None]
  - ATELECTASIS [None]
  - OSTEOARTHRITIS [None]
  - HYPOALBUMINAEMIA [None]
  - OSTEONECROSIS OF JAW [None]
  - PARAESTHESIA ORAL [None]
  - DYSPNOEA [None]
  - HYPOAESTHESIA ORAL [None]
  - ANAEMIA [None]
  - HYPERTENSION [None]
  - SEPSIS [None]
  - CHEST PAIN [None]
  - HYPERPHOSPHATAEMIA [None]
  - LEUKOCYTOSIS [None]
  - SLEEP APNOEA SYNDROME [None]
  - EXCESSIVE GRANULATION TISSUE [None]
  - GINGIVAL DISORDER [None]
  - DEPRESSION [None]
